FAERS Safety Report 6384641-0 (Version None)
Quarter: 2009Q4

REPORT INFORMATION
  Report Type: 
  Country: None (occurrence: None)
  Receive Date: 20091001
  Receipt Date: 20090922
  Transmission Date: 20100525
  Serious: Yes (Other)
  Sender: FDA-Public Use
  Company Number: PHHY2009BR41643

PATIENT
  Sex: Male

DRUGS (3)
  1. VOLTAREN [Suspect]
     Dosage: UNK
  2. OMEPRAZOLE [Concomitant]
  3. PREPAZOL [Concomitant]

REACTIONS (2)
  - ABASIA [None]
  - BONE PAIN [None]
